FAERS Safety Report 5740697-7 (Version None)
Quarter: 2008Q2

REPORT INFORMATION
  Report Type: 
  Country: None (occurrence: None)
  Receive Date: 20080516
  Receipt Date: 20080513
  Transmission Date: 20081010
  Serious: Yes (Hospitalization, Disabling)
  Sender: FDA-Public Use
  Company Number: US-SANOFI-SYNTHELABO-A03200801626

PATIENT
  Sex: Female
  Weight: 58.96 kg

DRUGS (5)
  1. ATIVAN [Concomitant]
     Indication: DRUG USE FOR UNKNOWN INDICATION
     Route: 048
  2. ASPIRIN [Concomitant]
     Indication: DRUG USE FOR UNKNOWN INDICATION
     Route: 048
     Dates: start: 20050101, end: 20080410
  3. LIPITOR [Concomitant]
     Indication: DRUG USE FOR UNKNOWN INDICATION
     Dosage: UNK
     Route: 048
  4. PLAVIX [Suspect]
     Indication: MUSCULAR WEAKNESS
     Route: 048
     Dates: start: 20080406, end: 20080401
  5. PLAVIX [Suspect]
     Indication: VENOUS OCCLUSION
     Route: 048
     Dates: start: 20080406, end: 20080401

REACTIONS (2)
  - CEREBRAL HAEMORRHAGE [None]
  - THROMBOSIS [None]
